FAERS Safety Report 4538992-2 (Version None)
Quarter: 2004Q4

REPORT INFORMATION
  Report Type: 
  Country: None (occurrence: None)
  Receive Date: 20041223
  Receipt Date: 20040921
  Transmission Date: 20050328
  Serious: No
  Sender: FDA-Public Use
  Company Number: US-JNJFOC-20040907873

PATIENT
  Age: 19 Year
  Sex: Female
  Weight: 49.8957 kg

DRUGS (2)
  1. ORTHO EVRA [Suspect]
     Indication: CONTRACEPTION
     Dosage: 1 DOSE, 3 IN 4 WEEK(S), TRANSDERMAL
     Route: 062
     Dates: start: 20040912
  2. PAXIL [Concomitant]

REACTIONS (4)
  - BREAST TENDERNESS [None]
  - DIARRHOEA [None]
  - METRORRHAGIA [None]
  - NAUSEA [None]
